FAERS Safety Report 8808836 (Version 1)
Quarter: 2012Q4

REPORT INFORMATION
  Report Type: Spontaneous
  Country: TR (occurrence: None)
  Receive Date: 20120920
  Receipt Date: 20120920
  Transmission Date: 20130627
  Serious: Yes (Hospitalization)
  Sender: FDA-Public Use
  Company Number: AE-SPE-2012-010

PATIENT
  Age: 7 Year
  Sex: Male

DRUGS (2)
  1. CEFDITOREN [Suspect]
     Indication: ACUTE TONSILLITIS
  2. CEFDITOREN [Suspect]
     Indication: ACUTE PHARYNGITIS

REACTIONS (6)
  - Oedema [None]
  - Arthritis [None]
  - Rash papular [None]
  - Pruritus [None]
  - Pallor [None]
  - Rash erythematous [None]
